FAERS Safety Report 9132047 (Version 1)
Quarter: 2013Q1

REPORT INFORMATION
  Report Type: Report from Study
  Country: US (occurrence: US)
  Receive Date: 20130301
  Receipt Date: 20130301
  Transmission Date: 20140127
  Serious: No
  Sender: FDA-Public Use
  Company Number: US-MYLANLABS-2012S1001483

PATIENT
  Age: 16 Year
  Sex: Female
  Weight: 61.24 kg

DRUGS (2)
  1. AMNESTEEM CAPSULES [Suspect]
     Indication: ACNE
  2. PREDNISONE [Concomitant]
     Dosage: 2 TABS X 5 DAYS THEN 1 TAB X 25 DAY.  22-AUG-2011 AND 17-JAN-2012

REACTIONS (2)
  - Acne [Not Recovered/Not Resolved]
  - Treatment noncompliance [Not Recovered/Not Resolved]
